FAERS Safety Report 23118228 (Version 5)
Quarter: 2024Q4

REPORT INFORMATION
  Report Type: Report from Study
  Country: US (occurrence: US)
  Receive Date: 20231027
  Receipt Date: 20241206
  Transmission Date: 20250115
  Serious: No
  Sender: NOVARTIS
  Company Number: US-002147023-NVSC2023US230718

PATIENT
  Sex: Female

DRUGS (4)
  1. KISQALI [Suspect]
     Active Substance: RIBOCICLIB
     Indication: Product used for unknown indication
     Dosage: 600 MG, QD (3 WEEKS ON THEN OFF 1 WEEK)
     Route: 065
  2. KISQALI [Suspect]
     Active Substance: RIBOCICLIB
     Dosage: 400 MG, QD (3 WEEKS ON THEN 1 WEEK OFF)
     Route: 065
  3. KISQALI [Suspect]
     Active Substance: RIBOCICLIB
     Dosage: 400 MG, QD (2 WEEK ON THEN 1 WEEK OFF)
     Route: 065
  4. KISQALI [Suspect]
     Active Substance: RIBOCICLIB
     Dosage: 400 MG/KG, QD
     Route: 048
     Dates: start: 20230921

REACTIONS (12)
  - Full blood count decreased [Unknown]
  - Diarrhoea [Unknown]
  - Hair texture abnormal [Unknown]
  - Pruritus [Unknown]
  - Nausea [Unknown]
  - Fatigue [Unknown]
  - Alopecia [Unknown]
  - Laboratory test abnormal [Unknown]
  - Off label use [Unknown]
  - Dry skin [Unknown]
  - Dry eye [Unknown]
  - Hair texture abnormal [Unknown]
